FAERS Safety Report 8195880-0 (Version None)
Quarter: 2012Q1

REPORT INFORMATION
  Report Type: 
  Country: None (occurrence: None)
  Receive Date: 20120308
  Receipt Date: 20120228
  Transmission Date: 20120608
  Serious: Yes (Hospitalization)
  Sender: FDA-Public Use
  Company Number: FR-FRI-1000028827

PATIENT
  Sex: Male

DRUGS (7)
  1. CHIBRO-CADROM [Concomitant]
  2. CANDESARTAN CILEXETIL [Suspect]
     Dosage: 8  MG
     Route: 048
     Dates: start: 20111231
  3. HAVLANE [Suspect]
     Route: 048
     Dates: start: 20111231
  4. ASPIRIN [Concomitant]
  5. NICARDIPINE HYDROCHLORIDE [Suspect]
     Dosage: 100 MG
     Dates: start: 20111231
  6. NEBIVOLOL [Suspect]
     Dosage: 7.5 MG
     Route: 048
     Dates: start: 20111231, end: 20120114
  7. CRESTOR [Concomitant]

REACTIONS (4)
  - ORTHOSTATIC HYPOTENSION [None]
  - BRADYCARDIA [None]
  - FALL [None]
  - SYNCOPE [None]
